FAERS Safety Report 5484336-1 (Version None)
Quarter: 2007Q4

REPORT INFORMATION
  Report Type: 
  Country: None (occurrence: None)
  Receive Date: 20071010
  Receipt Date: 20070924
  Transmission Date: 20080405
  Serious: Yes (Other)
  Sender: FDA-Public Use
  Company Number: 8027022

PATIENT
  Age: 38 Year
  Sex: Female

DRUGS (11)
  1. METHYLPHENIDATE HCL [Suspect]
     Dosage: 10 MG 2/D PO
     Route: 048
  2. ASCORBIC ACID [Concomitant]
  3. DIAZEPAM [Concomitant]
  4. GLIPIZIDE [Concomitant]
  5. INSULIN [Concomitant]
  6. METAXALONE [Concomitant]
  7. METFORMIN HCL [Concomitant]
  8. ALPRAZOLAM [Concomitant]
  9. BISACODYL [Concomitant]
  10. DEXTROSE 50% [Concomitant]
  11. HYDROCODONE/ PARACETAMOL [Concomitant]

REACTIONS (2)
  - BLOOD GLUCOSE DECREASED [None]
  - DRUG INTERACTION INHIBITION [None]
